FAERS Safety Report 25507380 (Version 2)
Quarter: 2025Q3

REPORT INFORMATION
  Report Type: Spontaneous
  Country: US (occurrence: US)
  Receive Date: 20250703
  Receipt Date: 20250915
  Transmission Date: 20251020
  Serious: No
  Sender: SANOFI AVENTIS
  Company Number: US-SA-2025SA186311

PATIENT
  Age: 31 Year
  Sex: Male

DRUGS (3)
  1. DUPIXENT [Suspect]
     Active Substance: DUPILUMAB
     Indication: Eczema
     Route: 058
     Dates: start: 20250618, end: 20250618
  2. DUPIXENT [Suspect]
     Active Substance: DUPILUMAB
     Indication: Dermatitis atopic
     Dosage: 300 MG, QOW
     Route: 058
     Dates: start: 2025
  3. PIMECROLIMUS [Concomitant]
     Active Substance: PIMECROLIMUS

REACTIONS (6)
  - Dandruff [Unknown]
  - Condition aggravated [Unknown]
  - Eczema [Unknown]
  - Erythema [Unknown]
  - Pruritus [Unknown]
  - Dermatitis atopic [Unknown]

NARRATIVE: CASE EVENT DATE: 20250101
